FAERS Safety Report 4421831-8 (Version None)
Quarter: 2004Q3

REPORT INFORMATION
  Report Type: 
  Country: None (occurrence: None)
  Receive Date: 20040805
  Receipt Date: 20040728
  Transmission Date: 20050211
  Serious: Yes (Death, Hospitalization)
  Sender: FDA-Public Use
  Company Number: US-JNJFOC-20040707999

PATIENT
  Sex: Male

DRUGS (1)
  1. EXTRA STRENGTH TYLENOL [Suspect]
     Dosage: A LOT FOR 10-15 YEARS

REACTIONS (2)
  - DRUG DEPENDENCE [None]
  - THERAPEUTIC AGENT TOXICITY [None]
